FAERS Safety Report 4748221-2 (Version None)
Quarter: 2005Q3

REPORT INFORMATION
  Report Type: 
  Country: None (occurrence: None)
  Receive Date: 20050818
  Receipt Date: 20050802
  Transmission Date: 20060218
  Serious: Yes (Other)
  Sender: FDA-Public Use
  Company Number: PHBS2005FR11060

PATIENT
  Age: 48 Year
  Sex: Male
  Weight: 50 kg

DRUGS (6)
  1. CLOZAPINE [Suspect]
     Indication: SCHIZOPHRENIA, PARANOID TYPE
     Dosage: 600 MG/D
     Route: 065
     Dates: start: 19930101
  2. VIRAFERONPEG [Suspect]
     Indication: HEPATITIS C
     Dosage: 0.5 ML/D
     Route: 058
     Dates: start: 20020701, end: 20030701
  3. REBETOL [Suspect]
     Indication: HEPATITIS C
     Dosage: 800 MG/D
     Route: 065
     Dates: start: 20020701, end: 20030701
  4. LEPTICUR [Concomitant]
     Dosage: 10 MG/D
     Route: 065
  5. HEPTAMINOL [Concomitant]
     Dosage: 380 MG/D
     Route: 065
  6. DRIPTANE [Concomitant]
     Dosage: 5 MG/D
     Route: 065

REACTIONS (4)
  - DRUG INTERACTION [None]
  - NEUTROPENIA [None]
  - NEUTROPHIL COUNT DECREASED [None]
  - WHITE BLOOD CELL COUNT DECREASED [None]
